FAERS Safety Report 16819960 (Version 1)
Quarter: 2019Q3

REPORT INFORMATION
  Report Type: Report from Study
  Country: None (occurrence: US)
  Receive Date: 20190918
  Receipt Date: 20190918
  Transmission Date: 20191005
  Serious: Yes (Other)
  Sender: FDA-Public Use
  Company Number: US-ABBVIE-19K-163-2657649-00

PATIENT
  Age: 55 Year
  Sex: Female

DRUGS (3)
  1. HUMIRA [Suspect]
     Active Substance: ADALIMUMAB
     Route: 058
     Dates: start: 2019
  2. ASPARTAME [Suspect]
     Active Substance: ASPARTAME
     Indication: PRODUCT USED FOR UNKNOWN INDICATION
     Route: 065
  3. HUMIRA [Suspect]
     Active Substance: ADALIMUMAB
     Indication: HIDRADENITIS
     Route: 058
     Dates: start: 20180406, end: 20190128

REACTIONS (25)
  - Atrial fibrillation [Not Recovered/Not Resolved]
  - Productive cough [Not Recovered/Not Resolved]
  - Device issue [Unknown]
  - Surgery [Unknown]
  - Dizziness [Recovered/Resolved]
  - Post procedural complication [Not Recovered/Not Resolved]
  - Rhinorrhoea [Unknown]
  - Wheezing [Unknown]
  - Headache [Not Recovered/Not Resolved]
  - Incorrect dose administered [Unknown]
  - Rales [Unknown]
  - Cardiovascular disorder [Not Recovered/Not Resolved]
  - Cough [Recovered/Resolved]
  - Chronic obstructive pulmonary disease [Recovered/Resolved]
  - Lower respiratory tract infection [Unknown]
  - Postoperative adhesion [Not Recovered/Not Resolved]
  - Multiple allergies [Not Recovered/Not Resolved]
  - Hidradenitis [Unknown]
  - Constipation [Not Recovered/Not Resolved]
  - Abdominal distension [Unknown]
  - Influenza like illness [Unknown]
  - Fatigue [Unknown]
  - Musculoskeletal stiffness [Not Recovered/Not Resolved]
  - Cystitis [Unknown]
  - Lung infection [Unknown]

NARRATIVE: CASE EVENT DATE: 20190330
